FAERS Safety Report 10006448 (Version 1)
Quarter: 2014Q1

REPORT INFORMATION
  Report Type: Spontaneous
  Country: US (occurrence: None)
  Receive Date: 20140312
  Receipt Date: 20140312
  Transmission Date: 20141002
  Serious: Yes (Life-Threatening, Disabling)
  Sender: FDA-Public Use
  Company Number: None

PATIENT
  Age: 36 Year
  Sex: Male
  Weight: 76.2 kg

DRUGS (1)
  1. Z PACK [Suspect]
     Indication: ACUTE TONSILLITIS
     Dosage: 2 FIRST DAY 1 DAY AFTER
     Route: 048
     Dates: start: 20140221, end: 20140305

REACTIONS (3)
  - Swollen tongue [None]
  - Rash generalised [None]
  - Stevens-Johnson syndrome [None]
